FAERS Safety Report 14489332 (Version 1)
Quarter: 2018Q1

REPORT INFORMATION
  Report Type: Spontaneous
  Country: US (occurrence: US)
  Receive Date: 20180205
  Receipt Date: 20180205
  Transmission Date: 20180509
  Serious: No
  Sender: FDA-Public Use
  Company Number: US-AMGEN-USASP2017029926

PATIENT
  Age: 62 Year
  Sex: Male

DRUGS (5)
  1. NEULASTA [Suspect]
     Active Substance: PEGFILGRASTIM
     Indication: PRODUCT USED FOR UNKNOWN INDICATION
     Dosage: UNK
     Route: 065
  2. CISPLATIN. [Concomitant]
     Active Substance: CISPLATIN
     Indication: BLADDER CANCER
     Dosage: UNK UNK, Q4WK (EVERY 28 DAYS)
  3. VINBLASTINE [Concomitant]
     Active Substance: VINBLASTINE
     Indication: BLADDER CANCER
     Dosage: UNK UNK, Q4WK (EVERY 28 DAYS)
  4. METHOTREXATE. [Concomitant]
     Active Substance: METHOTREXATE
     Indication: BLADDER CANCER
     Dosage: UNK UNK, Q4WK (EVERY 28 DAYS)
  5. DOXORUBICIN [Concomitant]
     Active Substance: DOXORUBICIN
     Indication: BLADDER CANCER
     Dosage: UNK UNK, Q4WK (EVERY 28 DAYS)

REACTIONS (1)
  - Wrong technique in product usage process [Unknown]

NARRATIVE: CASE EVENT DATE: 20170222
